FAERS Safety Report 12343177 (Version 4)
Quarter: 2019Q4

REPORT INFORMATION
  Report Type: Report from Study
  Country: AU (occurrence: AU)
  Receive Date: 20160506
  Receipt Date: 20191024
  Transmission Date: 20200122
  Serious: Yes (Hospitalization, Other)
  Sender: FDA-Public Use
  Company Number: AU-REGENERON PHARMACEUTICALS, INC.-2016-16417

PATIENT

DRUGS (1)
  1. EYLEA [Suspect]
     Active Substance: AFLIBERCEPT
     Indication: NEOVASCULAR AGE-RELATED MACULAR DEGENERATION
     Dosage: 2 MG, MONTHLY
     Route: 031

REACTIONS (7)
  - Injection site pain [Unknown]
  - Inappropriate schedule of product administration [Unknown]
  - Injection site discomfort [Recovered/Resolved]
  - Visual impairment [Unknown]
  - Hypertension [Unknown]
  - Superficial injury of eye [Unknown]
  - Anxiety [Unknown]
